FAERS Safety Report 9735037 (Version 3)
Quarter: 2014Q1

REPORT INFORMATION
  Report Type: Report from Study
  Country: CZ (occurrence: CZ)
  Receive Date: 20131206
  Receipt Date: 20140211
  Transmission Date: 20141002
  Serious: Yes (Hospitalization)
  Sender: FDA-Public Use
  Company Number: CZ-ROCHE-1311847

PATIENT
  Age: 83 Year
  Sex: Female
  Weight: 70 kg

DRUGS (16)
  1. VISMODEGIB [Suspect]
     Indication: BASAL CELL CARCINOMA
     Dosage: DATE OF LAST DOSE PRIOR TO SAE: 7/NOV/2013
     Route: 048
     Dates: start: 20130417
  2. OXYPHYLLIN [Concomitant]
     Indication: VASCULAR INSUFFICIENCY
     Route: 065
     Dates: start: 200101, end: 20130814
  3. ASCORUTIN [Concomitant]
     Indication: VARICOSE VEIN
     Route: 065
     Dates: start: 200101, end: 20130410
  4. BETASERC [Concomitant]
     Indication: VERTIGO
     Route: 065
     Dates: start: 200101, end: 20130414
  5. WARFARIN [Concomitant]
     Indication: PHLEBITIS
     Route: 065
     Dates: start: 20130410, end: 20130715
  6. LUSOPRESS [Concomitant]
     Indication: HYPERTENSION
     Route: 065
     Dates: start: 20130814, end: 20131110
  7. PRESTARIUM NEO [Concomitant]
     Indication: HYPERTENSION
     Route: 065
     Dates: start: 20130814
  8. INDAPAMID [Concomitant]
     Indication: HYPERTENSION
     Route: 065
     Dates: start: 20130814, end: 20131110
  9. KALNORMIN [Concomitant]
     Route: 065
     Dates: start: 20130814, end: 20131110
  10. MINIRIN [Concomitant]
     Indication: NOCTURIA
     Route: 065
     Dates: start: 20130814
  11. NITROFURANTOIN [Concomitant]
     Indication: DYSURIA
     Route: 065
     Dates: start: 20130909, end: 20131010
  12. AZITHROMYCIN [Concomitant]
     Indication: URINARY TRACT INFECTION
     Route: 065
     Dates: start: 20131010, end: 20131012
  13. AGEN (CZECH REPUBLIC) [Concomitant]
     Indication: HYPERTENSION
     Route: 065
     Dates: start: 20131010
  14. XYZAL [Concomitant]
     Indication: PRURITUS
     Route: 065
     Dates: start: 20131114, end: 20131119
  15. CITALEC [Concomitant]
     Indication: DYSPHORIA
     Route: 065
     Dates: start: 20130814
  16. TEBOKAN [Concomitant]
     Route: 065
     Dates: start: 20130814

REACTIONS (1)
  - Cholangitis acute [Recovered/Resolved]
